FAERS Safety Report 22167347 (Version 4)
Quarter: 2023Q2

REPORT INFORMATION
  Report Type: Spontaneous
  Country: FR (occurrence: FR)
  Receive Date: 20230403
  Receipt Date: 20230502
  Transmission Date: 20230722
  Serious: Yes (Hospitalization)
  Sender: FDA-Public Use
  Company Number: FR-CORZA MEDICAL GMBH-2023-FR-002208

PATIENT
  Sex: Female

DRUGS (1)
  1. TACHOSIL [Suspect]
     Active Substance: FIBRINOGEN HUMAN\THROMBIN HUMAN
     Indication: Posterior fossa decompression
     Dosage: UNK
     Route: 065
     Dates: start: 20160325, end: 20160325

REACTIONS (1)
  - Meningitis aseptic [Unknown]
